FAERS Safety Report 9280188 (Version 1)
Quarter: 2013Q2

REPORT INFORMATION
  Report Type: Spontaneous
  Country: US (occurrence: None)
  Receive Date: 20130507
  Receipt Date: 20130507
  Transmission Date: 20140414
  Serious: Yes (Disabling)
  Sender: FDA-Public Use
  Company Number: None

PATIENT
  Age: 76 Year
  Sex: Female
  Weight: 52.62 kg

DRUGS (1)
  1. LEVAQUIN [Suspect]
     Indication: SINUSITIS
     Route: 048
     Dates: start: 20111110, end: 20111119

REACTIONS (15)
  - Musculoskeletal stiffness [None]
  - Musculoskeletal pain [None]
  - Musculoskeletal stiffness [None]
  - Myalgia [None]
  - Joint stiffness [None]
  - Arthralgia [None]
  - Pain in extremity [None]
  - Joint stiffness [None]
  - Arthralgia [None]
  - Joint swelling [None]
  - Tendon pain [None]
  - Tendonitis [None]
  - Rotator cuff syndrome [None]
  - Sinusitis [None]
  - Myalgia [None]
